FAERS Safety Report 23277339 (Version 1)
Quarter: 2023Q4

REPORT INFORMATION
  Report Type: Spontaneous
  Country: US (occurrence: US)
  Receive Date: 20231208
  Receipt Date: 20231208
  Transmission Date: 20240109
  Serious: No
  Sender: FDA-Public Use
  Company Number: US-PFIZER INC-202300416402

PATIENT
  Sex: Female

DRUGS (1)
  1. PAXLOVID [Suspect]
     Active Substance: NIRMATRELVIR\RITONAVIR
     Indication: COVID-19 treatment
     Dosage: UNK
     Dates: start: 20231127

REACTIONS (11)
  - Somnolence [Unknown]
  - Headache [Unknown]
  - Dizziness [Unknown]
  - Dyspnoea [Unknown]
  - Memory impairment [Unknown]
  - Cerebral disorder [Unknown]
  - Illness [Unknown]
  - Gait inability [Unknown]
  - Product size issue [Unknown]
  - Wrong technique in product usage process [Unknown]
  - Product prescribing error [Unknown]
